FAERS Safety Report 12422818 (Version 2)
Quarter: 2016Q2

REPORT INFORMATION
  Report Type: Report from Study
  Country: TW (occurrence: TW)
  Receive Date: 20160601
  Receipt Date: 20160615
  Transmission Date: 20160815
  Serious: Yes (Hospitalization)
  Sender: FDA-Public Use
  Company Number: TW-ROCHE-1767904

PATIENT
  Age: 84 Year
  Sex: Male
  Weight: 76 kg

DRUGS (2)
  1. AVASTIN [Suspect]
     Active Substance: BEVACIZUMAB
     Indication: COLORECTAL CANCER
     Route: 041
     Dates: start: 20160105, end: 20160523
  2. AVASTIN [Suspect]
     Active Substance: BEVACIZUMAB
     Dosage: DRUG RESTARTED
     Route: 042
     Dates: start: 20160614

REACTIONS (1)
  - Intestinal obstruction [Recovering/Resolving]

NARRATIVE: CASE EVENT DATE: 20160523
